FAERS Safety Report 25607249 (Version 1)
Quarter: 2025Q3

REPORT INFORMATION
  Report Type: Report from Study
  Country: CN (occurrence: CN)
  Receive Date: 20250725
  Receipt Date: 20250725
  Transmission Date: 20251021
  Serious: Yes (Other)
  Sender: RANBAXY
  Company Number: CN-SUN PHARMACEUTICAL INDUSTRIES LTD-2025R1-512601

PATIENT
  Sex: Male

DRUGS (4)
  1. OCTREOTIDE [Suspect]
     Active Substance: OCTREOTIDE
     Indication: Hyperinsulinism
     Dosage: 30 MICROGRAM/KILOGRAM, DAILY
     Route: 065
  2. OCTREOTIDE [Suspect]
     Active Substance: OCTREOTIDE
     Dosage: 15 MICROGRAM/KILOGRAM, DAILY
     Route: 058
  3. DIAZOXIDE [Suspect]
     Active Substance: DIAZOXIDE
     Indication: Hyperinsulinism
     Dosage: 15 MICROGRAM/KILOGRAM, DAILY
     Route: 065
  4. DEXTROSE [Suspect]
     Active Substance: DEXTROSE MONOHYDRATE
     Indication: Hyperinsulinism
     Dosage: 10 MICROGRAM/KILOGRAM, DAILY
     Route: 065

REACTIONS (1)
  - Treatment failure [Unknown]
